FAERS Safety Report 25556204 (Version 5)
Quarter: 2025Q4

REPORT INFORMATION
  Report Type: Spontaneous
  Country: US (occurrence: US)
  Receive Date: 20250715
  Receipt Date: 20251223
  Transmission Date: 20260117
  Serious: No
  Sender: SANOFI AVENTIS
  Company Number: US-SA-2025SA198354

PATIENT
  Age: 54 Year
  Sex: Female
  Weight: 94.331 kg

DRUGS (2)
  1. FABRAZYME [Suspect]
     Active Substance: AGALSIDASE BETA
     Indication: Fabry^s disease
     Dosage: 90 MG (70 MG + 20 MG), QOW (IN 250ML NORMAL SALINE (TOTAL VOLUME) OVER APPROXIMATELY 1.5 HOURS)
     Route: 042
     Dates: start: 20140409, end: 20250710
  2. FABRAZYME [Suspect]
     Active Substance: AGALSIDASE BETA
     Dosage: 90 MG (70 MG + 20 MG), QOW
     Route: 042
     Dates: start: 2025

REACTIONS (4)
  - Illness [Unknown]
  - Weight increased [Unknown]
  - Pain in extremity [Not Recovered/Not Resolved]
  - Product dose omission issue [Not Recovered/Not Resolved]

NARRATIVE: CASE EVENT DATE: 20250101
